FAERS Safety Report 7050909-8 (Version None)
Quarter: 2010Q4

REPORT INFORMATION
  Report Type: 
  Country: None (occurrence: None)
  Receive Date: 20101019
  Receipt Date: 20100412
  Transmission Date: 20110411
  Serious: Yes (Other)
  Sender: FDA-Public Use
  Company Number: US-ASTRAZENECA-2009UW19158

PATIENT
  Age: 12362 Day
  Sex: Male

DRUGS (5)
  1. SEROQUEL [Suspect]
     Route: 048
     Dates: start: 20080227
  2. DEPAKOTE [Concomitant]
     Dates: start: 20080227
  3. TRAZODONE HCL [Concomitant]
     Dates: start: 20080227
  4. MS CONTIN [Concomitant]
     Dates: start: 20080513
  5. KLONOPIN [Concomitant]
     Dates: start: 20081114

REACTIONS (2)
  - DIABETIC NEUROPATHY [None]
  - TYPE 2 DIABETES MELLITUS [None]
